FAERS Safety Report 13282908 (Version 3)
Quarter: 2017Q2

REPORT INFORMATION
  Report Type: Report from Study
  Country: US (occurrence: US)
  Receive Date: 20170301
  Receipt Date: 20170417
  Transmission Date: 20170830
  Serious: Yes (Death, Hospitalization, Other)
  Sender: FDA-Public Use
  Company Number: US-GILEAD-2017-0254172

PATIENT
  Age: 61 Year
  Sex: Male
  Weight: 107 kg

DRUGS (15)
  1. AMBRISENTAN [Suspect]
     Active Substance: AMBRISENTAN
     Indication: PORTAL HYPERTENSION
  2. LASIX [Concomitant]
     Active Substance: FUROSEMIDE
  3. AMBRISENTAN [Suspect]
     Active Substance: AMBRISENTAN
     Indication: NON-ALCOHOLIC STEATOHEPATITIS
  4. ATIVAN [Concomitant]
     Active Substance: LORAZEPAM
  5. AMBRISENTAN [Suspect]
     Active Substance: AMBRISENTAN
     Indication: PULMONARY HYPERTENSION
     Dosage: 10 MG, QD
     Route: 065
     Dates: start: 20130409
  6. VITAMIN D3 [Concomitant]
     Active Substance: CHOLECALCIFEROL
  7. COLESTID [Concomitant]
     Active Substance: COLESTIPOL HYDROCHLORIDE
  8. KADIAN [Concomitant]
     Active Substance: MORPHINE SULFATE
  9. KLOR-CON [Concomitant]
     Active Substance: POTASSIUM CHLORIDE
  10. KRISTALOSE [Concomitant]
     Active Substance: LACTULOSE
  11. REVATIO [Concomitant]
     Active Substance: SILDENAFIL CITRATE
  12. ASCORBIC ACID. [Concomitant]
     Active Substance: ASCORBIC ACID
  13. METHADONE [Concomitant]
     Active Substance: METHADONE HYDROCHLORIDE
  14. ALDACTONE [Concomitant]
     Active Substance: SPIRONOLACTONE
  15. CHOLESTYRAMINE. [Concomitant]
     Active Substance: CHOLESTYRAMINE

REACTIONS (1)
  - Gastrointestinal haemorrhage [Fatal]
